FAERS Safety Report 9654605 (Version 1)
Quarter: 2013Q4

REPORT INFORMATION
  Report Type: Spontaneous
  Country: US (occurrence: US)
  Receive Date: 20131029
  Receipt Date: 20131029
  Transmission Date: 20140711
  Serious: No
  Sender: FDA-Public Use
  Company Number: US-BIOGENIDEC-2013BI085332

PATIENT
  Age: 66 Year
  Sex: Female

DRUGS (6)
  1. TECFIDERA [Suspect]
     Indication: MULTIPLE SCLEROSIS
     Dates: start: 20130812
  2. TECFIDERA [Suspect]
     Indication: MULTIPLE SCLEROSIS
     Route: 048
  3. MIRAPEX [Concomitant]
  4. AMPYRA [Concomitant]
  5. FLUOXETINE HCL [Concomitant]
  6. PRAMIPEXOLE DIHYDROCHLORIDE [Concomitant]

REACTIONS (1)
  - Flushing [Recovered/Resolved]
